FAERS Safety Report 22211521 (Version 1)
Quarter: 2023Q2

REPORT INFORMATION
  Report Type: Report from Study
  Country: KR (occurrence: KR)
  Receive Date: 20230414
  Receipt Date: 20230414
  Transmission Date: 20230722
  Serious: Yes (Hospitalization)
  Sender: FDA-Public Use
  Company Number: KR-GLAXOSMITHKLINE-KR2023GSK054008

PATIENT

DRUGS (31)
  1. BELIMUMAB [Suspect]
     Active Substance: BELIMUMAB
     Indication: Systemic lupus erythematosus
     Dosage: 448 DF
     Route: 042
     Dates: start: 20220929
  2. BELIMUMAB [Suspect]
     Active Substance: BELIMUMAB
     Dosage: 472 DF
     Route: 042
     Dates: start: 20221027
  3. BELIMUMAB [Suspect]
     Active Substance: BELIMUMAB
     Dosage: 460 DF
     Route: 042
     Dates: start: 20221124
  4. BELIMUMAB [Suspect]
     Active Substance: BELIMUMAB
     Dosage: 478 DF
     Route: 042
     Dates: start: 20230216
  5. PREDNISOLONE [Concomitant]
     Active Substance: PREDNISOLONE
     Indication: Product used for unknown indication
     Dosage: 20 MG, QD
     Route: 048
     Dates: start: 20220901, end: 20221026
  6. PREDNISOLONE [Concomitant]
     Active Substance: PREDNISOLONE
     Dosage: 15 MG, QD
     Route: 048
     Dates: start: 20221027, end: 20221113
  7. PREDNISOLONE [Concomitant]
     Active Substance: PREDNISOLONE
     Dosage: 20 MG, BID
     Route: 048
     Dates: start: 20221117, end: 20221123
  8. PREDNISOLONE [Concomitant]
     Active Substance: PREDNISOLONE
     Dosage: 30 MG, QD
     Route: 048
     Dates: start: 20221124, end: 20221207
  9. PREDNISOLONE [Concomitant]
     Active Substance: PREDNISOLONE
     Dosage: 25 MG, QD
     Route: 048
     Dates: start: 20221208, end: 20221214
  10. PREDNISOLONE [Concomitant]
     Active Substance: PREDNISOLONE
     Dosage: 20 MG, QD
     Route: 048
     Dates: start: 20221215, end: 20221221
  11. PREDNISOLONE [Concomitant]
     Active Substance: PREDNISOLONE
     Dosage: 15 MG, QD
     Route: 048
     Dates: start: 20221222, end: 20230215
  12. PREDNISOLONE [Concomitant]
     Active Substance: PREDNISOLONE
     Dosage: 12.5 MG, QD
     Route: 048
     Dates: start: 20230216, end: 20230315
  13. PREDNISOLONE [Concomitant]
     Active Substance: PREDNISOLONE
     Dosage: 10 MG, QD
     Route: 048
     Dates: start: 20230316, end: 20230330
  14. MYCOPHENOLATE MOFETIL [Concomitant]
     Active Substance: MYCOPHENOLATE MOFETIL
     Indication: Product used for unknown indication
     Dosage: 1000 MG, QD
     Route: 048
     Dates: start: 20220901, end: 20221112
  15. MYCOPHENOLATE MOFETIL [Concomitant]
     Active Substance: MYCOPHENOLATE MOFETIL
     Dosage: 1000 MG, QD
     Route: 048
     Dates: start: 20221117
  16. SOLU-MEDROL [Concomitant]
     Active Substance: METHYLPREDNISOLONE SODIUM SUCCINATE
     Indication: Product used for unknown indication
     Dosage: 31.25 MG, BID
     Route: 042
     Dates: start: 20221114, end: 20221116
  17. MYCAL-D TABLET [Concomitant]
     Indication: Osteopenia
     Dosage: 1 DF, QD
     Route: 048
     Dates: start: 20220728, end: 20221112
  18. MYCAL-D TABLET [Concomitant]
     Dosage: 1 DF, QD
     Route: 048
     Dates: start: 20221117
  19. PANTOLOC TABLET [Concomitant]
     Indication: Gastrointestinal disorder prophylaxis
     Dosage: 20 MG, QD
     Route: 048
     Dates: start: 20221117, end: 20230330
  20. FLAGYL [Concomitant]
     Active Substance: METRONIDAZOLE\METRONIDAZOLE HYDROCHLORIDE
     Indication: Enteritis
     Dosage: 500 MG, BID
     Route: 042
     Dates: start: 20221113, end: 20221113
  21. FLAGYL [Concomitant]
     Active Substance: METRONIDAZOLE\METRONIDAZOLE HYDROCHLORIDE
     Dosage: 500 MG, TID
     Route: 042
     Dates: start: 20221114, end: 20221114
  22. FLAGYL [Concomitant]
     Active Substance: METRONIDAZOLE\METRONIDAZOLE HYDROCHLORIDE
     Dosage: 500 MG, QD
     Route: 042
     Dates: start: 20221115, end: 20221115
  23. POTASSIUM CHLORIDE [Concomitant]
     Active Substance: POTASSIUM CHLORIDE
     Indication: Lupus enteritis
     Dosage: 20 ML
     Route: 042
     Dates: start: 20221115, end: 20221116
  24. PHOSTEN [Concomitant]
     Indication: Lupus enteritis
     Dosage: 20 ML, QD
     Route: 042
     Dates: start: 20221114, end: 20221114
  25. CEFTRIAXONE [Concomitant]
     Active Substance: CEFTRIAXONE
     Indication: Lupus enteritis
     Dosage: 2 G, QD
     Route: 042
     Dates: start: 20221113, end: 20221114
  26. PANTOPRAZOLE SODIUM [Concomitant]
     Active Substance: PANTOPRAZOLE SODIUM
     Indication: Gastrointestinal disorder prophylaxis
     Dosage: 40 MG, QD
     Route: 042
     Dates: start: 20221113, end: 20221116
  27. HARTMANN S [Concomitant]
     Indication: Lupus enteritis
     Dosage: 1000 ML, QD
     Route: 042
     Dates: start: 20221113, end: 20221116
  28. AMINO ACIDS\DEXTROSE\ELECTROLYTES NOS\SOYBEAN OIL\VITAMINS [Concomitant]
     Active Substance: AMINO ACIDS\DEXTROSE\ELECTROLYTES NOS\SOYBEAN OIL\VITAMINS
     Indication: Lupus enteritis
     Dosage: 1085 ML, QD
     Route: 042
     Dates: start: 20221113, end: 20221116
  29. TORADOL [Concomitant]
     Active Substance: KETOROLAC TROMETHAMINE
     Indication: Lupus enteritis
     Dosage: 50 MG, BID
     Route: 042
     Dates: start: 20221113, end: 20221113
  30. ACEPHEN [Concomitant]
     Active Substance: ACETAMINOPHEN
     Indication: Lupus enteritis
     Dosage: 1 G, QD
     Route: 042
     Dates: start: 20221113, end: 20221113
  31. BROPIUM [Concomitant]
     Indication: Lupus enteritis
     Dosage: 5 MG, BID
     Route: 042
     Dates: start: 20221113, end: 20221113

REACTIONS (1)
  - Lupus enteritis [Recovered/Resolved]

NARRATIVE: CASE EVENT DATE: 20230329
